FAERS Safety Report 9292140 (Version 1)
Quarter: 2013Q2

REPORT INFORMATION
  Report Type: Report from Study
  Country: US (occurrence: US)
  Receive Date: 20130516
  Receipt Date: 20130516
  Transmission Date: 20140414
  Serious: Yes (Other)
  Sender: FDA-Public Use
  Company Number: US-JNJFOC-20130503123

PATIENT
  Sex: 0

DRUGS (14)
  1. REMICADE [Suspect]
     Indication: UVEITIS
     Route: 042
     Dates: start: 201304
  2. REMICADE [Suspect]
     Indication: UVEITIS
     Route: 042
     Dates: start: 201303
  3. REMICADE [Suspect]
     Indication: ANKYLOSING SPONDYLITIS
     Route: 042
     Dates: start: 201304
  4. REMICADE [Suspect]
     Indication: ANKYLOSING SPONDYLITIS
     Route: 042
     Dates: start: 201303
  5. METHOTREXATE [Concomitant]
     Indication: UVEITIS
     Route: 065
  6. METHOTREXATE [Concomitant]
     Indication: UVEITIS
     Route: 065
  7. METHOTREXATE [Concomitant]
     Indication: ANKYLOSING SPONDYLITIS
     Route: 065
  8. METHOTREXATE [Concomitant]
     Indication: ANKYLOSING SPONDYLITIS
     Route: 065
  9. CELEBREX [Concomitant]
     Indication: UVEITIS
     Route: 065
  10. CELEBREX [Concomitant]
     Indication: ANKYLOSING SPONDYLITIS
     Route: 065
  11. FOLIC ACID [Concomitant]
     Indication: UVEITIS
     Route: 065
  12. FOLIC ACID [Concomitant]
     Indication: ANKYLOSING SPONDYLITIS
     Route: 065
  13. PREDNISONE [Concomitant]
     Indication: UVEITIS
     Route: 065
  14. PREDNISONE [Concomitant]
     Indication: ANKYLOSING SPONDYLITIS
     Route: 065

REACTIONS (4)
  - Vertigo [Recovering/Resolving]
  - Fatigue [Recovering/Resolving]
  - Rash [Unknown]
  - Off label use [Unknown]
